FAERS Safety Report 4495708-6 (Version None)
Quarter: 2004Q4

REPORT INFORMATION
  Report Type: 
  Country: None (occurrence: None)
  Receive Date: 20041108
  Receipt Date: 20041019
  Transmission Date: 20050328
  Serious: Yes (Life-Threatening, Hospitalization)
  Sender: FDA-Public Use
  Company Number: US-MERCK-0410USA02697

PATIENT
  Age: 70 Year
  Sex: Male

DRUGS (6)
  1. VIOXX [Suspect]
     Indication: ARTHRALGIA
     Route: 048
     Dates: start: 20030923, end: 20040216
  2. VIOXX [Suspect]
     Indication: OSTEOARTHRITIS
     Route: 048
     Dates: start: 20030923, end: 20040216
  3. ZESTRIL [Concomitant]
     Route: 065
  4. ASPIRIN [Concomitant]
     Route: 065
  5. TENORMIN [Concomitant]
     Route: 065
  6. ALLEGRA [Concomitant]
     Route: 065

REACTIONS (8)
  - ABDOMINAL PAIN [None]
  - ANOREXIA [None]
  - CHILLS [None]
  - CORONARY ARTERY OCCLUSION [None]
  - CORONARY ARTERY STENOSIS [None]
  - DYSPEPSIA [None]
  - HYPERHIDROSIS [None]
  - STOMACH DISCOMFORT [None]
